FAERS Safety Report 8182381-9 (Version None)
Quarter: 2012Q1

REPORT INFORMATION
  Report Type: 
  Country: None (occurrence: None)
  Receive Date: 20120303
  Receipt Date: 20120222
  Transmission Date: 20120608
  Serious: No
  Sender: FDA-Public Use
  Company Number: US-B.I. PHARMACEUTICALS,INC./RIDGEFIELD-2012-BP-03376BP

PATIENT
  Sex: Male

DRUGS (14)
  1. STOOL SOFTENER [Concomitant]
  2. GLUCOSAMINE [Concomitant]
     Dosage: 500 MG
  3. VITAMIN D [Concomitant]
     Dosage: 2000 U
  4. AMIODARONE HCL [Concomitant]
     Dosage: 200 MG
  5. A-Z VITAMINS [Concomitant]
  6. FISH OIL [Concomitant]
     Dosage: 1200 MG
  7. PRADAXA [Suspect]
     Dosage: 300 MG
  8. METROGEL [Concomitant]
  9. OMEPRAZOLE [Concomitant]
     Dosage: 20 MG
  10. LEVOTHYROXINE SODIUM [Concomitant]
     Dosage: 0.2025 MG
  11. ZETIA [Concomitant]
     Dosage: 10 MG
  12. LOSARTAN POTASSIUM [Concomitant]
     Dosage: 50 MG
  13. ZOLPIDEM [Concomitant]
     Dosage: 5 MG
  14. FLAXSEED OIL [Concomitant]
     Dosage: 1200 MG

REACTIONS (1)
  - CONSTIPATION [None]
